FAERS Safety Report 6336685-2 (Version None)
Quarter: 2009Q3

REPORT INFORMATION
  Report Type: 
  Country: None (occurrence: None)
  Receive Date: 20090901
  Receipt Date: 20090825
  Transmission Date: 20100115
  Serious: Yes (Hospitalization)
  Sender: FDA-Public Use
  Company Number: FR-MERCK-0908FRA00042

PATIENT
  Age: 38 Year
  Sex: Male

DRUGS (11)
  1. ISENTRESS [Suspect]
     Indication: HIV INFECTION
     Route: 048
     Dates: start: 20090721, end: 20090803
  2. DOXYCYCLINE [Suspect]
     Route: 048
     Dates: start: 20090721, end: 20090731
  3. ENFUVIRTIDE [Concomitant]
     Route: 065
     Dates: start: 20090606, end: 20090720
  4. LAMIVUDINE [Concomitant]
     Route: 065
     Dates: start: 20090606
  5. SAQUINAVIR MESYLATE [Concomitant]
     Route: 065
     Dates: start: 20090606
  6. RITONAVIR [Concomitant]
     Route: 065
     Dates: start: 20090606
  7. ATORVASTATIN CALCIUM [Concomitant]
     Route: 065
  8. RAMIPRIL [Concomitant]
     Route: 065
  9. ESOMEPRAZOLE MAGNESIUM [Concomitant]
     Route: 065
  10. ATOVAQUONE [Concomitant]
     Route: 065
  11. FOLIC ACID [Concomitant]
     Route: 065

REACTIONS (4)
  - ALANINE AMINOTRANSFERASE INCREASED [None]
  - ASPARTATE AMINOTRANSFERASE INCREASED [None]
  - BLOOD BILIRUBIN INCREASED [None]
  - GAMMA-GLUTAMYLTRANSFERASE INCREASED [None]
